FAERS Safety Report 6808580-3 (Version None)
Quarter: 2010Q2

REPORT INFORMATION
  Report Type: 
  Country: None (occurrence: None)
  Receive Date: 20100629
  Receipt Date: 20090720
  Transmission Date: 20101027
  Serious: Yes (Other)
  Sender: FDA-Public Use
  Company Number: US-PFIZER INC-2009229492

PATIENT
  Sex: Male
  Weight: 122.5 kg

DRUGS (6)
  1. VIAGRA [Suspect]
     Indication: ERECTILE DYSFUNCTION
     Dosage: 50 MG, AS NEEDED
     Dates: start: 20090401
  2. ANDROGEL [Suspect]
     Indication: BLOOD TESTOSTERONE DECREASED
     Dosage: 5 MG, 1X/DAY
  3. PRAVASTATIN [Concomitant]
     Indication: BLOOD CHOLESTEROL INCREASED
     Dosage: UNK
  4. LORATADINE [Concomitant]
     Indication: RHINITIS ALLERGIC
     Dosage: UNK
  5. MINOXIDIL [Concomitant]
     Indication: ALOPECIA
     Dosage: UNK
     Route: 061
  6. ACETYLSALICYLIC ACID [Concomitant]
     Indication: BACK PAIN
     Dosage: UNK

REACTIONS (2)
  - ERECTION INCREASED [None]
  - SPONTANEOUS PENILE ERECTION [None]
